FAERS Safety Report 4577932-7 (Version None)
Quarter: 2005Q1

REPORT INFORMATION
  Report Type: 
  Country: None (occurrence: None)
  Receive Date: 20050209
  Receipt Date: 20050124
  Transmission Date: 20050727
  Serious: Yes (Hospitalization)
  Sender: FDA-Public Use
  Company Number: 6012755

PATIENT
  Age: 73 Year
  Sex: Male

DRUGS (7)
  1. LEVOTHYROXINE SODIUM [Suspect]
     Dosage: 25 MCG 25 MCG, 1 IN 1 D), ORAL
     Route: 048
  2. TEGRETOL [Suspect]
     Dosage: 400 MG (200 MG, 2 IN 1 D), ORAL
     Route: 048
  3. FUROSEMIDE [Suspect]
     Dosage: (1 IN 1 D), ORAL
     Route: 048
  4. TRILEPTAL [Suspect]
     Dosage: 450 MG (150 MG, 3 IN 1 D), ORAL
     Route: 048
  5. SINTROM [Suspect]
     Dosage: 4 MG (4 MG, 1 IN 1 D), ORAL
     Route: 048
  6. RAMIPRIL [Suspect]
     Dosage: 5 MG (2,5 MG, 2 IN 1 D), ORAL
     Route: 048
  7. ALDACTONE [Suspect]
     Dosage: 0,5 DOSAGE FORMS (0,5 DOSAGE FORMS, 1 IN 1 D), ORAL
     Route: 048

REACTIONS (2)
  - LEUKOPENIA [None]
  - MICROCYTIC ANAEMIA [None]
